FAERS Safety Report 4358977-9 (Version None)
Quarter: 2004Q2

REPORT INFORMATION
  Report Type: 
  Country: None (occurrence: None)
  Receive Date: 20040517
  Receipt Date: 20031203
  Transmission Date: 20050107
  Serious: Yes (Hospitalization)
  Sender: FDA-Public Use
  Company Number: US-MERCK-0401USA01556

PATIENT
  Age: 58 Year
  Sex: Male

DRUGS (2)
  1. LITHIUM CARBONATE [Suspect]
     Route: 065
  2. VIOXX [Suspect]
     Route: 048

REACTIONS (3)
  - DRUG INTERACTION [None]
  - NEUROTOXICITY [None]
  - THERAPEUTIC AGENT TOXICITY [None]
